FAERS Safety Report 15863088 (Version 1)
Quarter: 2019Q1

REPORT INFORMATION
  Report Type: Spontaneous
  Country: US (occurrence: US)
  Receive Date: 20190124
  Receipt Date: 20190124
  Transmission Date: 20190417
  Serious: No
  Sender: FDA-Public Use
  Company Number: US-GLAXOSMITHKLINE-US2019012435

PATIENT
  Sex: Male

DRUGS (2)
  1. ABREVA [Suspect]
     Active Substance: DOCOSANOL
     Indication: PRODUCT USED FOR UNKNOWN INDICATION
     Dosage: 5 TIMES A DAY
     Dates: end: 20190118
  2. ABREVA [Suspect]
     Active Substance: DOCOSANOL
     Dosage: UNK

REACTIONS (2)
  - Incorrect product administration duration [Unknown]
  - Drug ineffective [Unknown]
